FAERS Safety Report 15001161 (Version 1)
Quarter: 2018Q2

REPORT INFORMATION
  Report Type: Report from Study
  Country: US (occurrence: US)
  Receive Date: 20180612
  Receipt Date: 20180612
  Transmission Date: 20180711
  Serious: Yes (Death, Hospitalization)
  Sender: FDA-Public Use
  Company Number: US-PFIZER INC-2018128819

PATIENT
  Age: 18 Year
  Sex: Male
  Weight: 63 kg

DRUGS (18)
  1. GABAPENTIN. [Suspect]
     Active Substance: GABAPENTIN
     Dosage: UNK
  2. BACITRACIN. [Concomitant]
     Active Substance: BACITRACIN
  3. SULFAMETHOXAZOLE [Concomitant]
     Active Substance: SULFAMETHOXAZOLE
  4. FLUCONAZOLE. [Concomitant]
     Active Substance: FLUCONAZOLE
  5. CYTARABINE. [Suspect]
     Active Substance: CYTARABINE
     Indication: ACUTE MYELOID LEUKAEMIA
     Dosage: UNK, CYCLIC
     Dates: start: 20070116
  6. METRONIDAZOLE. [Suspect]
     Active Substance: METRONIDAZOLE
     Dosage: UNK
  7. AMPHOTERICIN [Suspect]
     Active Substance: AMPHOTERICIN B
     Dosage: UNK
  8. PROTONIX /00661201/ [Concomitant]
     Active Substance: OMEPRAZOLE
  9. MITOXANTRONE HCL [Suspect]
     Active Substance: MITOXANTRONE HYDROCHLORIDE
     Dosage: UNK
     Dates: start: 20070603, end: 20070606
  10. VANCOMYCIN HCL [Suspect]
     Active Substance: VANCOMYCIN HYDROCHLORIDE
     Dosage: UNK
  11. FUROSEMIDE. [Suspect]
     Active Substance: FUROSEMIDE
     Dosage: UNK
  12. VORICONAZOLE. [Concomitant]
     Active Substance: VORICONAZOLE
  13. MITOXANTRONE HCL [Suspect]
     Active Substance: MITOXANTRONE HYDROCHLORIDE
     Indication: ACUTE MYELOID LEUKAEMIA
     Dosage: FIRST COURSE
     Dates: start: 20070116
  14. GENTAMICIN SULFATE. [Suspect]
     Active Substance: GENTAMICIN SULFATE
     Dosage: UNK
  15. RANITIDINE. [Concomitant]
     Active Substance: RANITIDINE
  16. LANSOPRAZOLE. [Concomitant]
     Active Substance: LANSOPRAZOLE
  17. CYTARABINE. [Suspect]
     Active Substance: CYTARABINE
     Dosage: UNK, CYCLIC
     Dates: start: 20070531, end: 20070604
  18. MOXIFLOXACIN HYDROCHLORIDE. [Suspect]
     Active Substance: MOXIFLOXACIN HYDROCHLORIDE
     Dosage: UNK

REACTIONS (9)
  - Hypokalaemia [Unknown]
  - Acidosis [Unknown]
  - Hypotension [Unknown]
  - Pneumonia [Recovered/Resolved]
  - Klebsiella infection [Recovered/Resolved]
  - Hypoxia [Unknown]
  - Multiple organ dysfunction syndrome [Fatal]
  - Renal failure [Unknown]
  - Gastritis [Unknown]

NARRATIVE: CASE EVENT DATE: 20070609
